FAERS Safety Report 4768910-3 (Version None)
Quarter: 2005Q3

REPORT INFORMATION
  Report Type: 
  Country: None (occurrence: None)
  Receive Date: 20050914
  Receipt Date: 20050901
  Transmission Date: 20060218
  Serious: Yes (Other)
  Sender: FDA-Public Use
  Company Number: 2005-BP-15341RO

PATIENT
  Age: 39 Year
  Sex: Male
  Weight: 81.6 kg

DRUGS (2)
  1. PREDNISONE TAB [Suspect]
     Indication: CROHN'S DISEASE
     Dosage: TITRATED PER SYMPTOMS, PO
     Route: 048
  2. AZATHIOPRINE [Suspect]
     Indication: CROHN'S DISEASE
     Dosage: 125 MG DAILY, PO
     Route: 048

REACTIONS (4)
  - BACK PAIN [None]
  - PAIN IN EXTREMITY [None]
  - SWELLING [None]
  - TESTIS CANCER [None]
